FAERS Safety Report 11310247 (Version 1)
Quarter: 2015Q3

REPORT INFORMATION
  Report Type: Spontaneous
  Country: JP (occurrence: JP)
  Receive Date: 20150724
  Receipt Date: 20150724
  Transmission Date: 20151125
  Serious: Yes (Other)
  Sender: FDA-Public Use
  Company Number: JP-SA-2015SA110177

PATIENT
  Age: 38 Year
  Sex: Female
  Weight: 51 kg

DRUGS (1)
  1. MYSLEE [Suspect]
     Active Substance: ZOLPIDEM TARTRATE
     Route: 048

REACTIONS (10)
  - Renal impairment [Unknown]
  - Blood creatine phosphokinase increased [Unknown]
  - Blood glucose abnormal [Unknown]
  - Suicide attempt [Unknown]
  - Circulatory collapse [Unknown]
  - Coma [Unknown]
  - Intentional overdose [Unknown]
  - Vomiting [Unknown]
  - Constipation [Unknown]
  - Blood gases abnormal [Unknown]

NARRATIVE: CASE EVENT DATE: 20150714
